FAERS Safety Report 21721324 (Version 3)
Quarter: 2023Q1

REPORT INFORMATION
  Report Type: Spontaneous
  Country: CL (occurrence: CL)
  Receive Date: 20221213
  Receipt Date: 20230111
  Transmission Date: 20230418
  Serious: Yes (Other)
  Sender: FDA-Public Use
  Company Number: CL-GLAXOSMITHKLINE-CL2022AMR183363

PATIENT

DRUGS (1)
  1. FLUTICASONE PROPIONATE [Suspect]
     Active Substance: FLUTICASONE PROPIONATE
     Indication: Asthma
     Dosage: 2 PUFF(S), BID
     Dates: start: 20220610

REACTIONS (3)
  - Asthmatic crisis [Recovered/Resolved]
  - Rhinitis [Unknown]
  - Inappropriate schedule of product administration [Unknown]
